FAERS Safety Report 17239686 (Version 1)
Quarter: 2020Q1

REPORT INFORMATION
  Report Type: Spontaneous
  Country: US (occurrence: US)
  Receive Date: 20200106
  Receipt Date: 20200106
  Transmission Date: 20200409
  Serious: Yes (Hospitalization)
  Sender: FDA-Public Use
  Company Number: US-ANIPHARMA-2019-US-024305

PATIENT
  Age: 58 Year
  Sex: Male

DRUGS (2)
  1. MUPIROCIN. [Concomitant]
     Active Substance: MUPIROCIN
     Route: 061
  2. SULFAMETHOXAZOLE + TRIMETHOPRIM (NON-SPECIFIC) [Suspect]
     Active Substance: SULFAMETHOXAZOLE\TRIMETHOPRIM
     Indication: CELLULITIS

REACTIONS (1)
  - Acute generalised exanthematous pustulosis [Recovered/Resolved]
